FAERS Safety Report 6680736-2 (Version None)
Quarter: 2010Q2

REPORT INFORMATION
  Report Type: 
  Country: None (occurrence: None)
  Receive Date: 20100414
  Receipt Date: 20100402
  Transmission Date: 20101027
  Serious: Yes (Hospitalization)
  Sender: FDA-Public Use
  Company Number: FR-PFIZER INC-2007024553

PATIENT
  Age: 80 Year
  Sex: Male
  Weight: 82 kg

DRUGS (14)
  1. BLINDED *NO SUBJECT DRUG [Suspect]
     Indication: CARDIAC FAILURE
     Dosage: UNK
     Route: 048
     Dates: start: 20060919, end: 20070320
  2. BLINDED *PLACEBO [Suspect]
     Indication: CARDIAC FAILURE
     Dosage: UNK
     Route: 048
     Dates: start: 20060919, end: 20070320
  3. BLINDED EPLERENONE [Suspect]
     Indication: CARDIAC FAILURE
     Dosage: UNK
     Route: 048
     Dates: start: 20060919, end: 20070320
  4. BLINDED *NO SUBJECT DRUG [Suspect]
     Dosage: UNK
  5. BLINDED *PLACEBO [Suspect]
     Dosage: UNK
  6. BLINDED EPLERENONE [Suspect]
     Dosage: UNK
  7. CUMADIN [Concomitant]
     Route: 048
     Dates: start: 20030101
  8. BISOPROLOL FUMARATE [Concomitant]
     Route: 048
     Dates: start: 20030101
  9. LASIX [Concomitant]
     Route: 048
     Dates: start: 20060820
  10. PRAVASTATIN [Concomitant]
     Route: 048
     Dates: start: 20030101
  11. HEMIGOXINE NATIVELLE [Concomitant]
     Route: 048
     Dates: start: 20030101
  12. OMEPRAZOLE [Concomitant]
     Route: 048
     Dates: start: 20030101
  13. DIFFU K [Concomitant]
     Route: 048
     Dates: start: 20030101
  14. ATACAND [Concomitant]
     Route: 048
     Dates: start: 20030101

REACTIONS (2)
  - BRONCHIAL DISORDER [None]
  - HYPERKALAEMIA [None]
